FAERS Safety Report 5482090-0 (Version None)
Quarter: 2007Q4

REPORT INFORMATION
  Report Type: 
  Country: None (occurrence: None)
  Receive Date: 20071011
  Receipt Date: 20071003
  Transmission Date: 20080405
  Serious: Yes (Hospitalization)
  Sender: FDA-Public Use
  Company Number: PHBS2006BR13116

PATIENT
  Age: 25 Year
  Sex: Female
  Weight: 52 kg

DRUGS (4)
  1. PARLODEL [Suspect]
     Indication: BLOOD PROLACTIN INCREASED
     Dosage: 2.5 MG, QID
     Route: 048
  2. PARLODEL [Suspect]
     Dosage: 2.5 MG/DAY
     Route: 048
  3. PARLODEL [Suspect]
     Dosage: 5 MG/DAY
     Route: 048
  4. RIFOCINA [Concomitant]
     Dosage: UNK, UNK
     Dates: start: 20040101, end: 20040101

REACTIONS (5)
  - ADENOMA BENIGN [None]
  - DIZZINESS [None]
  - MALAISE [None]
  - NAUSEA [None]
  - SURGERY [None]
